FAERS Safety Report 9882844 (Version 1)
Quarter: 2014Q1

REPORT INFORMATION
  Report Type: Spontaneous
  Country: TR (occurrence: TR)
  Receive Date: 20140207
  Receipt Date: 20140207
  Transmission Date: 20141002
  Serious: Yes (Other)
  Sender: FDA-Public Use
  Company Number: TR-ASTRAZENECA-2014SE07467

PATIENT
  Age: 77 Year
  Sex: Female

DRUGS (5)
  1. QUETIAPINE [Suspect]
     Indication: DEPRESSION
     Route: 048
  2. QUETIAPINE [Interacting]
     Indication: DEMENTIA
     Route: 048
  3. CITALOPRAM [Interacting]
     Indication: DEPRESSION
  4. CITALOPRAM [Interacting]
     Indication: DEMENTIA
  5. ERLOTINIB [Interacting]
     Indication: LUNG ADENOCARCINOMA METASTATIC

REACTIONS (2)
  - Drug interaction [Unknown]
  - Hepatitis toxic [Recovered/Resolved]
